FAERS Safety Report 6960892-9 (Version None)
Quarter: 2010Q3

REPORT INFORMATION
  Report Type: 
  Country: None (occurrence: None)
  Receive Date: 20100901
  Receipt Date: 20100820
  Transmission Date: 20110219
  Serious: Yes (Other)
  Sender: FDA-Public Use
  Company Number: US-PFIZER INC-2010105391

PATIENT
  Sex: Male
  Weight: 102.04 kg

DRUGS (3)
  1. LYRICA [Suspect]
     Indication: NEURALGIA
     Dosage: 100 MG, 3X/DAY
     Route: 048
  2. MORPHINE [Concomitant]
     Indication: NEURALGIA
     Dosage: 15 MG, 3X/DAY
     Route: 048
  3. PERCOCET [Concomitant]
     Indication: NEURALGIA
     Dosage: UNK
     Route: 048

REACTIONS (1)
  - WEIGHT INCREASED [None]
